FAERS Safety Report 15196299 (Version 3)
Quarter: 2018Q4

REPORT INFORMATION
  Report Type: Spontaneous
  Country: DE (occurrence: DE)
  Receive Date: 20180725
  Receipt Date: 20180905
  Transmission Date: 20190204
  Serious: Yes (Hospitalization, Other)
  Sender: FDA-Public Use
  Company Number: DE-PFIZER INC-2018294754

PATIENT
  Age: 62 Year
  Sex: Male

DRUGS (2)
  1. UNACID (AMPICILLIN SODIUM\SULBACTAM SODIUM) [Suspect]
     Active Substance: AMPICILLIN SODIUM\SULBACTAM SODIUM
     Indication: CELLULITIS
     Dosage: UNK
     Route: 042
     Dates: start: 20170901
  2. UNACID PD [Suspect]
     Active Substance: SULTAMICILLIN TOSYLATE
     Dosage: 3X1
     Route: 048
     Dates: start: 201709

REACTIONS (7)
  - Hypoaesthesia [Not Recovered/Not Resolved]
  - Polyneuropathy [Unknown]
  - Sensory disturbance [Unknown]
  - Musculoskeletal disorder [Unknown]
  - Limb discomfort [Not Recovered/Not Resolved]
  - Discomfort [Unknown]
  - Pain [Not Recovered/Not Resolved]

NARRATIVE: CASE EVENT DATE: 201709
